FAERS Safety Report 5600727-X (Version None)
Quarter: 2008Q1

REPORT INFORMATION
  Report Type: 
  Country: None (occurrence: None)
  Receive Date: 20080123
  Receipt Date: 20080116
  Transmission Date: 20080703
  Serious: Yes (Hospitalization)
  Sender: FDA-Public Use
  Company Number: US-MERCK-0706USA00952

PATIENT
  Age: 48 Year
  Sex: Female
  Weight: 70 kg

DRUGS (19)
  1. FOSAMAX [Suspect]
     Indication: OSTEOPENIA
     Route: 048
  2. FOSAMAX [Suspect]
     Route: 048
     Dates: start: 19981215, end: 20021029
  3. FOSAMAX [Suspect]
     Route: 065
     Dates: start: 20021030
  4. FOSAMAX [Suspect]
     Route: 048
     Dates: end: 20060601
  5. FOSAMAX [Suspect]
     Indication: OSTEOPOROSIS
     Route: 048
  6. FOSAMAX [Suspect]
     Route: 048
     Dates: start: 19981215, end: 20021029
  7. FOSAMAX [Suspect]
     Route: 065
     Dates: start: 20021030
  8. FOSAMAX [Suspect]
     Route: 048
     Dates: end: 20060601
  9. PREMPRO [Concomitant]
     Indication: HORMONE REPLACEMENT THERAPY
     Route: 048
     Dates: start: 20000217, end: 20001215
  10. PREMARIN [Concomitant]
     Indication: HORMONE REPLACEMENT THERAPY
     Route: 048
     Dates: start: 20021203
  11. ENBREL [Concomitant]
     Route: 065
     Dates: start: 19950101
  12. METHOTREXATE [Concomitant]
     Indication: RHEUMATOID ARTHRITIS
     Route: 065
     Dates: start: 19940101
  13. STUDY DRUG (UNSPECIFIED) [Concomitant]
     Indication: RHEUMATOID ARTHRITIS
     Route: 048
     Dates: start: 19991216, end: 20030101
  14. VITAMIN E [Concomitant]
     Indication: ROUTINE HEALTH MAINTENANCE
     Route: 065
     Dates: start: 19981215
  15. ASCORBIC ACID [Concomitant]
     Indication: ROUTINE HEALTH MAINTENANCE
     Route: 065
     Dates: start: 19981215
  16. VITAMINS (UNSPECIFIED) [Concomitant]
     Indication: ROUTINE HEALTH MAINTENANCE
     Route: 048
     Dates: start: 19981215
  17. CALCIUM (UNSPECIFIED) [Concomitant]
     Indication: ROUTINE HEALTH MAINTENANCE
     Route: 065
     Dates: start: 19981215
  18. ARAVA [Concomitant]
     Indication: RHEUMATOID ARTHRITIS
     Route: 065
     Dates: start: 19981229
  19. IRON (UNSPECIFIED) [Concomitant]
     Indication: ROUTINE HEALTH MAINTENANCE
     Route: 065
     Dates: start: 20000217

REACTIONS (16)
  - ABSCESS [None]
  - CARPAL TUNNEL SYNDROME [None]
  - DERMATITIS ATOPIC [None]
  - FISTULA [None]
  - GINGIVAL DISORDER [None]
  - HYPOAESTHESIA ORAL [None]
  - IMPAIRED HEALING [None]
  - MENOPAUSAL DISORDER [None]
  - MIGRAINE [None]
  - ORAL INFECTION [None]
  - PAIN IN JAW [None]
  - TEMPOROMANDIBULAR JOINT SYNDROME [None]
  - TOOTH DISORDER [None]
  - TOOTH LOSS [None]
  - UTERINE DISORDER [None]
  - WEIGHT DECREASED [None]
